FAERS Safety Report 6094953-6 (Version None)
Quarter: 2009Q1

REPORT INFORMATION
  Report Type: 
  Country: None (occurrence: None)
  Receive Date: 20090227
  Receipt Date: 20090217
  Transmission Date: 20090719
  Serious: Yes (Hospitalization)
  Sender: FDA-Public Use
  Company Number: MY-PFIZER INC-2009172376

PATIENT

DRUGS (5)
  1. ZITHROMAX [Suspect]
     Indication: SEPSIS
     Dosage: 500 MG, UNK
     Route: 048
  2. TRIXONE [Suspect]
     Indication: SEPSIS
     Dosage: 1 G, 1X/DAY
     Route: 042
  3. LOVASTATIN [Concomitant]
  4. POTASSIUM CHLORIDE [Concomitant]
  5. RANITIDINE [Concomitant]

REACTIONS (2)
  - ALANINE AMINOTRANSFERASE INCREASED [None]
  - BLOOD ALKALINE PHOSPHATASE INCREASED [None]
